FAERS Safety Report 14409311 (Version 1)
Quarter: 2018Q1

REPORT INFORMATION
  Report Type: Report from Study
  Country: US (occurrence: US)
  Receive Date: 20180119
  Receipt Date: 20180119
  Transmission Date: 20180509
  Serious: Yes (Hospitalization)
  Sender: FDA-Public Use
  Company Number: US-TAIHO ONCOLOGY INC-EU-2018-00026

PATIENT
  Sex: Female
  Weight: 58.57 kg

DRUGS (1)
  1. LONSURF [Suspect]
     Active Substance: TIPIRACIL HYDROCHLORIDE\TRIFLURIDINE
     Indication: COLON CANCER METASTATIC
     Dosage: DOSAGE UNKNOWN
     Route: 048
     Dates: end: 2017

REACTIONS (6)
  - Malaise [Unknown]
  - Fatigue [Unknown]
  - Abdominal discomfort [Unknown]
  - Colostomy [Unknown]
  - Weight decreased [Unknown]
  - Decreased appetite [Unknown]

NARRATIVE: CASE EVENT DATE: 2017
